FAERS Safety Report 5867191-7 (Version None)
Quarter: 2008Q3

REPORT INFORMATION
  Report Type: 
  Country: None (occurrence: None)
  Receive Date: 20080829
  Receipt Date: 20080829
  Transmission Date: 20090109
  Serious: No
  Sender: FDA-Public Use
  Company Number: None

PATIENT
  Age: 58 Year
  Sex: Female
  Weight: 42.64 kg

DRUGS (1)
  1. EFFEXOR [Suspect]
     Indication: DEPRESSION
     Dosage: 37.5 MG DAILY PO
     Route: 048
     Dates: start: 20080710, end: 20080821

REACTIONS (3)
  - EYELID OEDEMA [None]
  - LIP SWELLING [None]
  - URTICARIA [None]
